FAERS Safety Report 13243858 (Version 2)
Quarter: 2017Q2

REPORT INFORMATION
  Report Type: Report from Study
  Country: FR (occurrence: FR)
  Receive Date: 20170216
  Receipt Date: 20170615
  Transmission Date: 20170830
  Serious: Yes (Hospitalization, Other)
  Sender: FDA-Public Use
  Company Number: FR-SEATTLE GENETICS-2016SGN01940

PATIENT
  Age: 67 Year
  Sex: Male
  Weight: 76 kg

DRUGS (2)
  1. VINBLASTINE [Concomitant]
     Active Substance: VINBLASTINE
     Indication: LYMPHOMA
     Dosage: 11.28 MG, UNK
     Route: 042
     Dates: start: 20160502, end: 20160604
  2. BRENTUXIMAB VEDOTIN [Suspect]
     Active Substance: BRENTUXIMAB VEDOTIN
     Indication: PERIPHERAL T-CELL LYMPHOMA UNSPECIFIED
     Dosage: 137 MG, UNK
     Route: 042
     Dates: start: 20160502, end: 20160604

REACTIONS (14)
  - Stevens-Johnson syndrome [Recovered/Resolved with Sequelae]
  - Haemodynamic instability [Unknown]
  - Intensive care unit acquired weakness [Unknown]
  - Fungal infection [Unknown]
  - Septic shock [Unknown]
  - Rash pruritic [Unknown]
  - General physical health deterioration [Recovering/Resolving]
  - Febrile neutropenia [Recovering/Resolving]
  - Febrile bone marrow aplasia [Recovered/Resolved]
  - Fungal oesophagitis [Unknown]
  - Neuropathy peripheral [Recovering/Resolving]
  - Lung disorder [Unknown]
  - Off label use [Unknown]
  - Rash macular [Unknown]

NARRATIVE: CASE EVENT DATE: 20160502
